FAERS Safety Report 5897021-9 (Version None)
Quarter: 2008Q3

REPORT INFORMATION
  Report Type: 
  Country: None (occurrence: None)
  Receive Date: 20080924
  Receipt Date: 20080613
  Transmission Date: 20090109
  Serious: Yes (Other)
  Sender: FDA-Public Use
  Company Number: US-ASTRAZENECA-2008UW01403

PATIENT
  Age: 582 Month
  Sex: Female
  Weight: 117.9 kg

DRUGS (4)
  1. SEROQUEL [Suspect]
     Indication: SLEEP DISORDER
     Route: 048
     Dates: start: 20060801, end: 20070901
  2. ABILIFY [Concomitant]
     Route: 048
     Dates: start: 20070101
  3. CLOZARIL [Concomitant]
     Route: 048
     Dates: start: 20070101
  4. THORAZINE [Concomitant]
     Dates: start: 20070101

REACTIONS (4)
  - BLOOD CHOLESTEROL INCREASED [None]
  - DIABETES MELLITUS [None]
  - DIABETIC COMA [None]
  - DIABETIC KETOACIDOSIS [None]
